FAERS Safety Report 23448635 (Version 4)
Quarter: 2024Q2

REPORT INFORMATION
  Report Type: Other
  Country: US (occurrence: US)
  Receive Date: 20240127
  Receipt Date: 20240620
  Transmission Date: 20240716
  Serious: No
  Sender: FDA-Public Use
  Company Number: US-TRAVERE-2023TVT00918

PATIENT
  Age: 59 Year
  Sex: Female

DRUGS (5)
  1. FILSPARI [Suspect]
     Active Substance: SPARSENTAN
     Indication: IgA nephropathy
     Dosage: THE 400 MG DOSE IS ONGOING (LATEST SHIPMENT DATE: 06-MAY-2024)
     Route: 048
     Dates: start: 20230504
  2. FISH OIL [Concomitant]
     Active Substance: FISH OIL
  3. CALCIUM [Concomitant]
     Active Substance: CALCIUM
  4. ESTRADIOL [Concomitant]
     Active Substance: ESTRADIOL
  5. ZOCOR [Concomitant]
     Active Substance: SIMVASTATIN

REACTIONS (6)
  - Influenza [Unknown]
  - Tooth disorder [Recovered/Resolved]
  - Nasopharyngitis [Unknown]
  - Pruritus [Unknown]
  - Hypersensitivity [Unknown]
  - Arthralgia [Unknown]

NARRATIVE: CASE EVENT DATE: 20231201
